FAERS Safety Report 7898404-8 (Version None)
Quarter: 2011Q4

REPORT INFORMATION
  Report Type: 
  Country: None (occurrence: None)
  Receive Date: 20111107
  Receipt Date: 20111024
  Transmission Date: 20120403
  Serious: Yes (Hospitalization)
  Sender: FDA-Public Use
  Company Number: MX-SANOFI-AVENTIS-2010SA054747

PATIENT
  Sex: Female
  Weight: 54 kg

DRUGS (10)
  1. SERTRALINE HYDROCHLORIDE [Concomitant]
     Indication: DEPRESSION
     Route: 048
     Dates: start: 20020101, end: 20100819
  2. ARAVA [Suspect]
     Indication: RHEUMATOID ARTHRITIS
     Route: 048
     Dates: start: 20000101, end: 20100819
  3. METHOTREXATE [Suspect]
     Indication: RHEUMATOID ARTHRITIS
     Route: 048
     Dates: start: 20100804, end: 20100819
  4. FOLIC ACID [Concomitant]
     Indication: VITAMIN SUPPLEMENTATION
     Route: 048
     Dates: start: 20000101
  5. PRILOSEC [Concomitant]
     Indication: GASTRITIS
     Route: 048
  6. MAGNESIUM [Concomitant]
     Route: 048
  7. ARAVA [Suspect]
     Route: 048
     Dates: start: 20101101
  8. CALCORT [Concomitant]
     Indication: RHEUMATOID ARTHRITIS
     Route: 048
     Dates: start: 20020101, end: 20100819
  9. VITAMIN E [Concomitant]
     Route: 048
  10. GRAPE SEED [Concomitant]
     Route: 048

REACTIONS (8)
  - FAECES DISCOLOURED [None]
  - THROMBOCYTOPENIA [None]
  - LIGAMENT SPRAIN [None]
  - FATIGUE [None]
  - GINGIVAL BLEEDING [None]
  - IMPAIRED HEALING [None]
  - MYALGIA [None]
  - ANAEMIA [None]
